FAERS Safety Report 6895967-6 (Version None)
Quarter: 2010Q3

REPORT INFORMATION
  Report Type: 
  Country: None (occurrence: None)
  Receive Date: 20100802
  Receipt Date: 20100628
  Transmission Date: 20110219
  Serious: Yes (Other)
  Sender: FDA-Public Use
  Company Number: PHEH2006US06651

PATIENT
  Sex: Male
  Weight: 65.759 kg

DRUGS (16)
  1. AREDIA [Suspect]
     Indication: OSTEOPOROSIS PROPHYLAXIS
     Dosage: EVERY 3 MONTHS
  2. ZOMETA [Suspect]
     Indication: OSTEOPOROSIS PROPHYLAXIS
     Dosage: EVERY 3 MONTHS
  3. FOSAMAX [Suspect]
     Dates: start: 19990101
  4. MEDROL [Concomitant]
  5. CALCIUM W/VITAMIN D NOS [Concomitant]
  6. BACTRIM [Concomitant]
     Indication: SKIN ULCER
     Dosage: TWICE WEEKLY
     Route: 048
  7. PLAQUENIL [Concomitant]
     Dosage: 800 MG, QD
     Route: 048
  8. PROGRAFT [Concomitant]
     Dosage: 2 MG, QD
     Route: 048
  9. CELL CEPT [Concomitant]
     Dosage: 2 G, QD
     Route: 048
  10. FAMVIR [Concomitant]
     Indication: MOUTH ULCERATION
     Dosage: UNK, PRN
  11. CITRACAL [Concomitant]
  12. GLUCOSAMINE [Concomitant]
  13. TRICOR [Concomitant]
  14. KEPPRA [Concomitant]
  15. NEXIUM [Concomitant]
  16. OS-CAL [Concomitant]

REACTIONS (53)
  - ACTIVITIES OF DAILY LIVING IMPAIRED [None]
  - ANXIETY [None]
  - ARTHRALGIA [None]
  - BONE DISORDER [None]
  - BONE LESION [None]
  - CELLULITIS [None]
  - CONTUSION [None]
  - COUGH [None]
  - DEBRIDEMENT [None]
  - DENTAL CARIES [None]
  - DENTAL OPERATION [None]
  - DIVERTICULUM INTESTINAL [None]
  - DRY EYE [None]
  - DRY MOUTH [None]
  - EPISTAXIS [None]
  - ERYTHEMA [None]
  - EXCESSIVE GRANULATION TISSUE [None]
  - FALL [None]
  - GENERAL PHYSICAL HEALTH DETERIORATION [None]
  - GINGIVAL BLEEDING [None]
  - GINGIVAL RECESSION [None]
  - GINGIVITIS [None]
  - GRAFT VERSUS HOST DISEASE [None]
  - HIP ARTHROPLASTY [None]
  - IMPAIRED HEALING [None]
  - INJURY [None]
  - JOINT RANGE OF MOTION DECREASED [None]
  - LIVER FUNCTION TEST ABNORMAL [None]
  - MOUTH ULCERATION [None]
  - OBSTRUCTIVE AIRWAYS DISORDER [None]
  - OSTEOARTHRITIS [None]
  - OSTEOMYELITIS [None]
  - OSTEONECROSIS [None]
  - OSTEONECROSIS OF JAW [None]
  - OSTEORADIONECROSIS [None]
  - PAIN [None]
  - PARAESTHESIA [None]
  - PERIODONTITIS [None]
  - POOR PERSONAL HYGIENE [None]
  - PRIMARY SEQUESTRUM [None]
  - SEQUESTRECTOMY [None]
  - SICCA SYNDROME [None]
  - SKIN EXFOLIATION [None]
  - SKIN GRAFT [None]
  - SKIN ULCER [None]
  - SPINAL DEFORMITY [None]
  - SUBDURAL HAEMATOMA [None]
  - SUBDURAL HAEMATOMA EVACUATION [None]
  - TOOTH EXTRACTION [None]
  - TOOTH FRACTURE [None]
  - VASOCONSTRICTION [None]
  - VERTIGO [None]
  - WOUND [None]
